FAERS Safety Report 8350938-8 (Version None)
Quarter: 2012Q2

REPORT INFORMATION
  Report Type: 
  Country: None (occurrence: None)
  Receive Date: 20120510
  Receipt Date: 20120501
  Transmission Date: 20120825
  Serious: Yes (Hospitalization)
  Sender: FDA-Public Use
  Company Number: US-VERTEX PHARMACEUTICALS INC.-AE-2012-006343

PATIENT
  Sex: Male
  Weight: 111.23 kg

DRUGS (10)
  1. PEGASYS [Concomitant]
     Dates: start: 20120420
  2. RIBASPHERE [Concomitant]
     Indication: HEPATITIS C
     Route: 048
     Dates: start: 20120106, end: 20120221
  3. LAMICTAL [Concomitant]
  4. SEROQUEL [Concomitant]
  5. PEGASYS [Concomitant]
     Indication: HEPATITIS C
     Route: 058
     Dates: start: 20120106, end: 20120218
  6. RIBASPHERE [Concomitant]
     Dates: start: 20120420
  7. ATIVAN [Concomitant]
  8. INCIVEK [Suspect]
     Dates: start: 20120420
  9. INCIVEK [Suspect]
     Indication: HEPATITIS C
     Route: 048
     Dates: start: 20120106, end: 20120221
  10. COUMADIN [Concomitant]

REACTIONS (5)
  - PNEUMONIA [None]
  - NAUSEA [None]
  - THROMBOSIS [None]
  - WHITE BLOOD CELL COUNT DECREASED [None]
  - ANORECTAL DISCOMFORT [None]
